FAERS Safety Report 16642868 (Version 3)
Quarter: 2019Q3

REPORT INFORMATION
  Report Type: Spontaneous
  Country: US (occurrence: US)
  Receive Date: 20190729
  Receipt Date: 20190814
  Transmission Date: 20191004
  Serious: Yes (Other)
  Sender: FDA-Public Use
  Company Number: US-PFIZER INC-2019318508

PATIENT
  Age: 65 Year
  Sex: Male

DRUGS (1)
  1. XALKORI [Suspect]
     Active Substance: CRIZOTINIB
     Indication: LARYNGEAL CANCER
     Dosage: 250 MG, UNK

REACTIONS (5)
  - Aphonia [Unknown]
  - Product use in unapproved indication [Unknown]
  - Pharyngeal disorder [Unknown]
  - Pneumonia [Not Recovered/Not Resolved]
  - Off label use [Unknown]
